FAERS Safety Report 10721236 (Version 2)
Quarter: 2015Q1

REPORT INFORMATION
  Report Type: Spontaneous
  Country: US (occurrence: US)
  Receive Date: 20150119
  Receipt Date: 20150301
  Transmission Date: 20150721
  Serious: No
  Sender: FDA-Public Use
  Company Number: US-ASTRAZENECA-2014SE97242

PATIENT
  Age: 29775 Day
  Sex: Female
  Weight: 42.2 kg

DRUGS (4)
  1. LEVOTHYROXINE [Concomitant]
     Active Substance: LEVOTHYROXINE
     Indication: THYROID DISORDER
     Route: 048
  2. ALBUTEROL IN NEBULIZER [Concomitant]
     Indication: DYSPNOEA
     Dosage: 0.083 AS REQUIRED
  3. PRAVASTATIN [Concomitant]
     Active Substance: PRAVASTATIN\PRAVASTATIN SODIUM
     Indication: HYPERTENSION
     Dosage: AT NIGHT
     Route: 048
  4. SYMBICORT [Suspect]
     Active Substance: BUDESONIDE\FORMOTEROL FUMARATE DIHYDRATE
     Indication: DYSPNOEA
     Dosage: 80MCG/4.5MCG, ONE PUFF IN THE MORNING AND ONE PUFF IN THE EVENING
     Route: 055

REACTIONS (8)
  - Tremor [Unknown]
  - Asthenia [Unknown]
  - Chronic obstructive pulmonary disease [Unknown]
  - Nasopharyngitis [Not Recovered/Not Resolved]
  - Circumstance or information capable of leading to medication error [Unknown]
  - Malaise [Unknown]
  - Off label use [Unknown]
  - Asthma [Unknown]

NARRATIVE: CASE EVENT DATE: 20141214
